FAERS Safety Report 4750550-3 (Version None)
Quarter: 2005Q3

REPORT INFORMATION
  Report Type: 
  Country: None (occurrence: None)
  Receive Date: 20050823
  Receipt Date: 20050815
  Transmission Date: 20060218
  Serious: Yes (Other)
  Sender: FDA-Public Use
  Company Number: PHEH2005US09030

PATIENT
  Age: 37 Year
  Sex: Male

DRUGS (1)
  1. DIOVAN [Suspect]
     Indication: AORTIC VALVE INCOMPETENCE
     Dosage: 80 MG, QD
     Route: 048
     Dates: start: 20040101

REACTIONS (2)
  - CONDITION AGGRAVATED [None]
  - GRAND MAL CONVULSION [None]
